FAERS Safety Report 22389214 (Version 2)
Quarter: 2023Q2

REPORT INFORMATION
  Report Type: Report from Study
  Country: CA (occurrence: CA)
  Receive Date: 20230531
  Receipt Date: 20230607
  Transmission Date: 20230722
  Serious: Yes (Hospitalization)
  Sender: FDA-Public Use
  Company Number: CA-JNJFOC-20230553269

PATIENT
  Age: 20 Year
  Sex: Male

DRUGS (4)
  1. GUSELKUMAB [Suspect]
     Active Substance: GUSELKUMAB
     Indication: Crohn^s disease
     Dosage: INTRAVENOUS/SUBCUTANEOUS
     Route: 042
     Dates: start: 20221102
  2. GUSELKUMAB [Suspect]
     Active Substance: GUSELKUMAB
  3. ERGOCALCIFEROL [Concomitant]
     Active Substance: ERGOCALCIFEROL
     Indication: Prophylaxis
     Dosage: 2000
     Route: 048
     Dates: start: 2018
  4. OMEGA-3 FATTY ACIDS [Concomitant]
     Active Substance: OMEGA-3 FATTY ACIDS
     Indication: Routine health maintenance
     Route: 048
     Dates: start: 202207

REACTIONS (1)
  - Crohn^s disease [Not Recovered/Not Resolved]

NARRATIVE: CASE EVENT DATE: 20230516
